FAERS Safety Report 15888970 (Version 1)
Quarter: 2019Q1

REPORT INFORMATION
  Report Type: Spontaneous
  Country: US (occurrence: US)
  Receive Date: 20190109
  Receipt Date: 20190109
  Transmission Date: 20190417
  Serious: No
  Sender: FDA-Public Use
  Company Number: None

PATIENT
  Sex: Female

DRUGS (1)
  1. XELJANZ [Suspect]
     Active Substance: TOFACITINIB CITRATE
     Indication: DERMATOMYOSITIS
     Dosage: TO ON HOLD
     Route: 048

REACTIONS (2)
  - Therapy cessation [None]
  - Cellulitis [None]
